FAERS Safety Report 6490244-X (Version None)
Quarter: 2009Q4

REPORT INFORMATION
  Report Type: 
  Country: None (occurrence: None)
  Receive Date: 20091124
  Receipt Date: 20090423
  Transmission Date: 20100525
  Serious: Yes (Hospitalization)
  Sender: FDA-Public Use
  Company Number: 2008-181399-NL

PATIENT
  Age: 83 Year
  Sex: Female

DRUGS (2)
  1. TICE BCG [Suspect]
     Indication: BLADDER CANCER
     Dosage: INVES
     Route: 043
     Dates: start: 20070101, end: 20080101
  2. TICE BCG [Suspect]
     Indication: BLADDER CANCER
     Dosage: INVES
     Route: 043
     Dates: start: 20080711

REACTIONS (1)
  - PSEUDOMONAS INFECTION [None]
